FAERS Safety Report 7076566-2 (Version None)
Quarter: 2010Q4

REPORT INFORMATION
  Report Type: 
  Country: None (occurrence: None)
  Receive Date: 20101101
  Receipt Date: 20101020
  Transmission Date: 20110411
  Serious: Yes (Other)
  Sender: FDA-Public Use
  Company Number: US-PFIZER INC-2010133721

PATIENT
  Sex: Female
  Weight: 49.887 kg

DRUGS (1)
  1. SERTRALINE HYDROCHLORIDE [Suspect]
     Indication: DEPRESSION
     Dosage: 175 MG, 1X/DAY
     Route: 048
     Dates: start: 20080101, end: 20090601

REACTIONS (2)
  - ALCOHOLIC [None]
  - DEPRESSION [None]
